FAERS Safety Report 21242887 (Version 1)
Quarter: 2022Q3

REPORT INFORMATION
  Report Type: Spontaneous
  Country: US (occurrence: None)
  Receive Date: 20220822
  Receipt Date: 20220822
  Transmission Date: 20221027
  Serious: Yes (unspecified)
  Sender: FDA-Public Use
  Company Number: None

PATIENT
  Age: 56 Year
  Sex: Male
  Weight: 86.18 kg

DRUGS (1)
  1. VUITY [Suspect]
     Active Substance: PILOCARPINE HYDROCHLORIDE
     Indication: Visual impairment
     Dosage: FREQUENCY : DAILY;?
     Route: 031
     Dates: start: 20220609, end: 20220614

REACTIONS (2)
  - Vitreous floaters [None]
  - Retinal tear [None]

NARRATIVE: CASE EVENT DATE: 20220614
